FAERS Safety Report 11768572 (Version 1)
Quarter: 2015Q4

REPORT INFORMATION
  Report Type: Spontaneous
  Country: US (occurrence: US)
  Receive Date: 20151123
  Receipt Date: 20151123
  Transmission Date: 20160304
  Serious: No
  Sender: FDA-Public Use
  Company Number: US-CELGENEUS-USA-2015095299

PATIENT
  Sex: Female
  Weight: 114.41 kg

DRUGS (2)
  1. REVLIMID [Suspect]
     Active Substance: LENALIDOMIDE
     Indication: PLASMA CELL MYELOMA
     Dosage: 10 MILLIGRAM
     Route: 048
     Dates: start: 20150826
  2. CYTOXAN [Concomitant]
     Active Substance: CYCLOPHOSPHAMIDE
     Indication: PRODUCT USED FOR UNKNOWN INDICATION
     Route: 065

REACTIONS (7)
  - Dysgeusia [Unknown]
  - Rash [Unknown]
  - Hair texture abnormal [Unknown]
  - Bursitis [Unknown]
  - Periarthritis [Unknown]
  - Dry skin [Unknown]
  - Onychoclasis [Unknown]

NARRATIVE: CASE EVENT DATE: 2015
